FAERS Safety Report 4616168-8 (Version None)
Quarter: 2005Q1

REPORT INFORMATION
  Report Type: 
  Country: None (occurrence: None)
  Receive Date: 20050321
  Receipt Date: 20030527
  Transmission Date: 20050727
  Serious: No
  Sender: FDA-Public Use
  Company Number: 5381

PATIENT
  Age: 35 Year
  Sex: Female

DRUGS (8)
  1. MORPHINE [Suspect]
     Indication: PAIN
     Dosage: PO
     Route: 048
     Dates: start: 20030508, end: 20030512
  2. GLIMEPIRIDE [Concomitant]
  3. ATORVASTATIN CALCIUM [Concomitant]
  4. VERAPAMIL [Concomitant]
  5. IMIPRAMINE [Concomitant]
  6. DEXTROMORAMIDE [Concomitant]
  7. FLUCONAZOLE [Concomitant]
  8. TRAMADOL [Concomitant]

REACTIONS (2)
  - PERIORBITAL OEDEMA [None]
  - SWELLING FACE [None]
